FAERS Safety Report 7021348-0 (Version None)
Quarter: 2010Q3

REPORT INFORMATION
  Report Type: 
  Country: None (occurrence: None)
  Receive Date: 20100929
  Receipt Date: 20100920
  Transmission Date: 20110219
  Serious: Yes (Other)
  Sender: FDA-Public Use
  Company Number: US-PFIZER INC-2009230467

PATIENT
  Sex: Male
  Weight: 81.6 kg

DRUGS (1)
  1. NAVANE [Suspect]
     Indication: PSYCHOTIC DISORDER
     Dosage: 1 MG, 1X/DAY
     Route: 048
     Dates: start: 19800101, end: 20050601

REACTIONS (3)
  - DRUG INEFFECTIVE [None]
  - MANIA [None]
  - THINKING ABNORMAL [None]
